FAERS Safety Report 6107172-1 (Version None)
Quarter: 2009Q1

REPORT INFORMATION
  Report Type: 
  Country: None (occurrence: None)
  Receive Date: 20090309
  Receipt Date: 20090224
  Transmission Date: 20090719
  Serious: Yes (Other)
  Sender: FDA-Public Use
  Company Number: DK-JNJFOC-20090206133

PATIENT
  Age: 48 Year
  Sex: Male

DRUGS (6)
  1. REMICADE [Suspect]
     Indication: ARTHRITIS
     Dosage: 3 INFUSIONS
     Route: 042
  2. PREDNISOLONE [Suspect]
     Dosage: DOSE REDUCED
  3. PREDNISOLONE [Suspect]
  4. PREDNISOLONE [Suspect]
     Indication: ARTHRITIS
  5. METHOTREXATE [Suspect]
     Indication: ARTHRITIS
  6. SALAZOPYRIN [Concomitant]
     Indication: ARTHRITIS

REACTIONS (2)
  - DRUG INEFFECTIVE [None]
  - MYCOBACTERIUM MARINUM INFECTION [None]
